FAERS Safety Report 14593603 (Version 1)
Quarter: 2018Q1

REPORT INFORMATION
  Report Type: Spontaneous
  Country: GB (occurrence: GB)
  Receive Date: 20180302
  Receipt Date: 20180302
  Transmission Date: 20180509
  Serious: Yes (Other)
  Sender: FDA-Public Use
  Company Number: GB-JNJFOC-20180235961

PATIENT
  Age: 20 Year
  Sex: Female
  Weight: 99 kg

DRUGS (2)
  1. REZOLSTA [Suspect]
     Active Substance: COBICISTAT\DARUNAVIR ETHANOLATE
     Indication: HIV INFECTION
     Dosage: 800MG /150MG
     Route: 048
     Dates: start: 20100801
  2. DEXAMETHASONE SODIUM PHOSPHATE. [Interacting]
     Active Substance: DEXAMETHASONE SODIUM PHOSPHATE
     Indication: CORNEAL TRANSPLANT
     Dosage: IN BOTH THE EYES
     Route: 047
     Dates: start: 20171012, end: 20171020

REACTIONS (2)
  - Cortisol decreased [Unknown]
  - Drug interaction [Unknown]

NARRATIVE: CASE EVENT DATE: 20171012
